FAERS Safety Report 8687413 (Version 4)
Quarter: 2012Q4

REPORT INFORMATION
  Report Type: 
  Country: RO (occurrence: RO)
  Receive Date: 20120727
  Receipt Date: 20120907
  Transmission Date: 20130627
  Serious: Yes (Life-Threatening, Hospitalization, Other)
  Sender: FDA-Public Use
  Company Number: RO-JNJFOC-20120711085

PATIENT
  Age: 22 Year
  Sex: Male
  Weight: 85 kg

DRUGS (3)
  1. RISPOLEPT [Suspect]
     Indication: SCHIZOPHRENIA
     Route: 030
     Dates: start: 20120504, end: 20120704
  2. RISPERDAL [Suspect]
     Indication: PRODUCT USED FOR UNKNOWN INDICATION
     Route: 048
     Dates: start: 20120716
  3. LORAZEPAM [Concomitant]
     Indication: PRODUCT USED FOR UNKNOWN INDICATION
     Route: 048
     Dates: start: 20120504, end: 20120518

REACTIONS (7)
  - Catatonia [Recovering/Resolving]
  - Hospitalisation [Not Recovered/Not Resolved]
  - Blood pressure increased [Unknown]
  - Pleurisy [Unknown]
  - Amnesia [None]
  - Drug ineffective [None]
  - Pyrexia [None]
